FAERS Safety Report 9248766 (Version 5)
Quarter: 2015Q2

REPORT INFORMATION
  Report Type: Spontaneous
  Country: US (occurrence: US)
  Receive Date: 20130423
  Receipt Date: 20150511
  Transmission Date: 20150821
  Serious: Yes (Hospitalization, Disabling, Other)
  Sender: FDA-Public Use
  Company Number: US-009507513-1304USA010634

PATIENT
  Sex: Male
  Weight: 130.16 kg

DRUGS (2)
  1. PROPECIA [Suspect]
     Active Substance: FINASTERIDE
     Indication: ANDROGENETIC ALOPECIA
     Dosage: 1 MG, UNK
     Route: 048
     Dates: start: 20090610, end: 20120512
  2. PROPECIA [Suspect]
     Active Substance: FINASTERIDE
     Indication: ALOPECIA

REACTIONS (31)
  - Gout [Unknown]
  - Hypertension [Unknown]
  - Sexual dysfunction [Not Recovered/Not Resolved]
  - Testicular atrophy [Unknown]
  - Prostatic disorder [Unknown]
  - Vertigo [Unknown]
  - Sexual dysfunction [Unknown]
  - Anxiety [Not Recovered/Not Resolved]
  - Wound treatment [Unknown]
  - Testicular pain [Unknown]
  - Loss of libido [Unknown]
  - Suicidal ideation [Not Recovered/Not Resolved]
  - Sleep apnoea syndrome [Unknown]
  - Depression [Not Recovered/Not Resolved]
  - Gun shot wound [Unknown]
  - Breast enlargement [Unknown]
  - Brain injury [Unknown]
  - Arthralgia [Unknown]
  - Cardiac failure congestive [Unknown]
  - Gastric banding [Unknown]
  - Sciatica [Unknown]
  - Penis injury [Unknown]
  - Appendicectomy [Unknown]
  - Genital hypoaesthesia [Unknown]
  - Cognitive disorder [Not Recovered/Not Resolved]
  - Penile size reduced [Unknown]
  - Groin pain [Unknown]
  - Semen volume decreased [Unknown]
  - Erectile dysfunction [Not Recovered/Not Resolved]
  - Hormone level abnormal [Unknown]
  - Sleep apnoea syndrome [Unknown]

NARRATIVE: CASE EVENT DATE: 2009
